FAERS Safety Report 9753620 (Version 8)
Quarter: 2014Q1

REPORT INFORMATION
  Report Type: Spontaneous
  Country: ES (occurrence: ES)
  Receive Date: 20131213
  Receipt Date: 20140331
  Transmission Date: 20141002
  Serious: Yes (Other)
  Sender: FDA-Public Use
  Company Number: ES-AMGEN-ESPSP2013077597

PATIENT
  Age: 62 Year
  Sex: Female
  Weight: 65 kg

DRUGS (12)
  1. ENBREL [Suspect]
     Indication: PSORIATIC ARTHROPATHY
     Dosage: 50 MG, WEEKLY (EVERY SATURDAY)
     Route: 058
     Dates: start: 20131004
  2. ENBREL [Suspect]
     Indication: ANKYLOSING SPONDYLITIS
     Dosage: UNK
     Route: 065
  3. METOJECT [Concomitant]
     Indication: PSORIATIC ARTHROPATHY
     Dosage: 30 MG, WEEKLY
     Route: 058
     Dates: start: 2011
  4. SIMVASTATIN [Concomitant]
     Indication: BLOOD CHOLESTEROL INCREASED
     Dosage: ONE TABLET, ONCE DAILY
  5. CITALOPRAM [Concomitant]
     Indication: DEPRESSION
     Dosage: 30 UNK, UNK
  6. LEXATIN                            /00424801/ [Concomitant]
     Indication: ANXIETY
     Dosage: UNK, ON DEMAND
  7. CALCIUM [Concomitant]
     Dosage: UNK
  8. ACFOL [Concomitant]
     Dosage: 1 TABLET THE DAY AFTER METHOTREXATE
  9. PREDNISONE [Concomitant]
     Dosage: 3 MG, DAILY
     Dates: start: 201310
  10. OMEPRAZOLE [Concomitant]
     Dosage: ONE TABLET, ONCE DAILY
  11. ARCOXIA [Concomitant]
     Indication: PAIN
     Dosage: UNK, IF INTENSE PAIN
  12. IDEOS UNIDIA [Concomitant]
     Dosage: UNK

REACTIONS (29)
  - Drowning [Recovered/Resolved]
  - Asthenia [Recovering/Resolving]
  - Hyperhidrosis [Recovering/Resolving]
  - Rash [Recovered/Resolved]
  - Malaise [Not Recovered/Not Resolved]
  - Sense of oppression [Not Recovered/Not Resolved]
  - Pain in extremity [Recovering/Resolving]
  - Pyrexia [Not Recovered/Not Resolved]
  - Lip swelling [Recovered/Resolved]
  - Nausea [Recovered/Resolved]
  - Headache [Unknown]
  - Ear pain [Recovered/Resolved]
  - Oropharyngeal pain [Recovered/Resolved]
  - Cough [Not Recovered/Not Resolved]
  - Sleep disorder due to general medical condition, insomnia type [Not Recovered/Not Resolved]
  - Fear of injection [Not Recovered/Not Resolved]
  - Dyspnoea [Not Recovered/Not Resolved]
  - Depressed mood [Not Recovered/Not Resolved]
  - Chest discomfort [Recovered/Resolved]
  - Pruritus generalised [Not Recovered/Not Resolved]
  - Injection site mass [Not Recovered/Not Resolved]
  - Influenza [Not Recovered/Not Resolved]
  - Drug ineffective [Recovering/Resolving]
  - Chest pain [Not Recovered/Not Resolved]
  - Oral herpes [Not Recovered/Not Resolved]
  - Injection site warmth [Recovered/Resolved]
  - Injection site pain [Not Recovered/Not Resolved]
  - Injection site haematoma [Not Recovered/Not Resolved]
  - Injection site erythema [Not Recovered/Not Resolved]
